FAERS Safety Report 8866480 (Version 2)
Quarter: 2012Q4

REPORT INFORMATION
  Report Type: 
  Country: DE (occurrence: DE)
  Receive Date: 20121025
  Receipt Date: 20121130
  Transmission Date: 20130627
  Serious: Yes (Hospitalization, Other)
  Sender: FDA-Public Use
  Company Number: DE-ALLERGAN-1214230US

PATIENT
  Age: 78 Year
  Sex: Male

DRUGS (3)
  1. OZURDEX [Suspect]
     Indication: CENTRAL RETINAL VEIN OCCLUSION
     Dosage: 0.7 mg, single
     Route: 031
     Dates: start: 20120919, end: 20120919
  2. FALITHROM [Concomitant]
     Indication: ANTICOAGULANT THERAPY
  3. TRUSOPT [Concomitant]
     Indication: DRUG USE FOR UNKNOWN INDICATION
     Dosage: UNK UNK, tid

REACTIONS (4)
  - Blindness [Not Recovered/Not Resolved]
  - Ocular fistula [Not Recovered/Not Resolved]
  - Endophthalmitis [Not Recovered/Not Resolved]
  - Cataract [Not Recovered/Not Resolved]
